FAERS Safety Report 13803602 (Version 2)
Quarter: 2017Q3

REPORT INFORMATION
  Report Type: Spontaneous
  Country: US (occurrence: US)
  Receive Date: 20170728
  Receipt Date: 20170818
  Transmission Date: 20171127
  Serious: Yes (Other)
  Sender: FDA-Public Use
  Company Number: US-TEVA-789867USA

PATIENT
  Sex: Male

DRUGS (5)
  1. RISPERDAL [Suspect]
     Active Substance: RISPERIDONE
     Route: 065
  2. RISPERIDONE. [Suspect]
     Active Substance: RISPERIDONE
     Route: 065
     Dates: start: 2010, end: 2015
  3. RISPERIDONE. [Suspect]
     Active Substance: RISPERIDONE
     Route: 065
     Dates: start: 2010, end: 2015
  4. SEROQUEL [Concomitant]
     Active Substance: QUETIAPINE FUMARATE
  5. REMERON [Concomitant]
     Active Substance: MIRTAZAPINE

REACTIONS (7)
  - Breast discharge [Unknown]
  - Depression [Unknown]
  - Gynaecomastia [Not Recovered/Not Resolved]
  - Neoplasm malignant [Not Recovered/Not Resolved]
  - Chest injury [Unknown]
  - Blood testosterone abnormal [Unknown]
  - Neoplasm [Not Recovered/Not Resolved]
